FAERS Safety Report 9063545 (Version 1)
Quarter: 2013Q1

REPORT INFORMATION
  Report Type: Report from Study
  Country: US (occurrence: US)
  Receive Date: 20130131
  Receipt Date: 20130131
  Transmission Date: 20140127
  Serious: Yes (Hospitalization)
  Sender: FDA-Public Use
  Company Number: US-ABBOTT-12P-163-1015487-00

PATIENT
  Sex: Female

DRUGS (1)
  1. HUMIRA [Suspect]
     Indication: CROHN^S DISEASE
     Route: 058
     Dates: start: 20110703

REACTIONS (6)
  - Anaphylactic reaction [Unknown]
  - Urticaria [Unknown]
  - Urticaria [Unknown]
  - Urticaria [Unknown]
  - Pain of skin [Unknown]
  - Injection site bruising [Unknown]
